FAERS Safety Report 21662400 (Version 1)
Quarter: 2022Q4

REPORT INFORMATION
  Report Type: Report from Study
  Country: US (occurrence: US)
  Receive Date: 20221130
  Receipt Date: 20221130
  Transmission Date: 20230112
  Serious: Yes (Other)
  Sender: FDA-Public Use
  Company Number: US-MYLANLABS-2022M1133464

PATIENT
  Age: 54 Year
  Sex: Male

DRUGS (4)
  1. LENALIDOMIDE [Suspect]
     Active Substance: LENALIDOMIDE
     Indication: Plasma cell myeloma
     Dosage: 25 MILLIGRAM
     Route: 065
  2. DEXAMETHASONE [Suspect]
     Active Substance: DEXAMETHASONE
     Indication: Plasma cell myeloma
     Dosage: UNK
     Route: 065
  3. DUPILUMAB [Concomitant]
     Active Substance: DUPILUMAB
     Indication: Rash
     Dosage: 600 MILLIGRAM (LOADING DOSE)
     Route: 058
  4. DUPILUMAB [Concomitant]
     Active Substance: DUPILUMAB
     Indication: Plasma cell myeloma
     Dosage: 300 MILLIGRAM, Q2W (MAINTENANCE THERAPY)
     Route: 058

REACTIONS (3)
  - Drug ineffective [Unknown]
  - Disease progression [Unknown]
  - Rash [Recovered/Resolved]
